FAERS Safety Report 5927033-8 (Version None)
Quarter: 2008Q4

REPORT INFORMATION
  Report Type: 
  Country: None (occurrence: None)
  Receive Date: 20081022
  Receipt Date: 20081014
  Transmission Date: 20090506
  Serious: Yes (Other)
  Sender: FDA-Public Use
  Company Number: PHEH2008US09049

PATIENT
  Age: 61 Year
  Sex: Female

DRUGS (1)
  1. RECLAST [Suspect]
     Indication: OSTEOPOROSIS
     Dosage: UNK, ONCE/SINGLE
     Dates: start: 20080901, end: 20080901

REACTIONS (3)
  - DENTAL OPERATION [None]
  - PERIODONTAL DISEASE [None]
  - TOOTH RESORPTION [None]
